FAERS Safety Report 16274762 (Version 1)
Quarter: 2019Q2

REPORT INFORMATION
  Report Type: Spontaneous
  Country: CZ (occurrence: SK)
  Receive Date: 20190504
  Receipt Date: 20190504
  Transmission Date: 20190711
  Serious: Yes (Other)
  Sender: FDA-Public Use
  Company Number: PHHY2019CZ078912

PATIENT
  Age: 32 Year
  Sex: Male

DRUGS (6)
  1. CYCLOPHOSPHAMIDE. [Suspect]
     Active Substance: CYCLOPHOSPHAMIDE
     Indication: GRANULOMATOSIS WITH POLYANGIITIS
     Dosage: 50 MG, UNK
     Route: 065
  2. SALBUTAMOL [Concomitant]
     Active Substance: ALBUTEROL
     Indication: GRANULOMATOSIS WITH POLYANGIITIS
     Route: 065
  3. OMEPRAZOL [Suspect]
     Active Substance: OMEPRAZOLE
     Indication: GRANULOMATOSIS WITH POLYANGIITIS
     Dosage: 20 MG, UNK
     Route: 065
  4. RAMIPRIL. [Concomitant]
     Active Substance: RAMIPRIL
     Indication: GRANULOMATOSIS WITH POLYANGIITIS
     Route: 065
  5. PREDNISON [Suspect]
     Active Substance: PREDNISONE
     Indication: GRANULOMATOSIS WITH POLYANGIITIS
     Dosage: 80 MG, UNK
     Route: 065
  6. FORMOTEROL FUMARATE [Concomitant]
     Active Substance: FORMOTEROL FUMARATE
     Indication: GRANULOMATOSIS WITH POLYANGIITIS
     Route: 065

REACTIONS (1)
  - Osteoporosis [Unknown]
